FAERS Safety Report 9523959 (Version 1)
Quarter: 2013Q1

REPORT INFORMATION
  Report Type: Spontaneous
  Country: US (occurrence: None)
  Receive Date: 20130313
  Receipt Date: 20130313
  Transmission Date: 20140127
  Serious: No
  Sender: FDA-Public Use
  Company Number: 1000029954

PATIENT
  Age: 50 Year
  Sex: Female

DRUGS (7)
  1. SAVELLA [Suspect]
     Indication: FIBROMYALGIA
     Dates: start: 2010, end: 2010
  2. SAVELLA [Suspect]
     Indication: POLYMYALGIA RHEUMATICA
     Dates: start: 2010, end: 2010
  3. LYRICA (PREGABALIN) (PREGABALIN) [Concomitant]
  4. IBUPROFEN (IBUPROFEN) (IBUPROFEN) [Concomitant]
  5. PROTONIX (PANTOPRAZOLE SODIUM SESQUIHYDRATE) (PANTOPRAZOLE SODIUM SESQUIHYDRATE) [Concomitant]
  6. BUTRANS (BUPRENORPHINE) (BUPRENORPHINE) [Concomitant]
  7. TRIAMTERENE (TRIAMTERENE) (TRIAMTERENE) [Concomitant]

REACTIONS (1)
  - Hyperhidrosis [None]
